FAERS Safety Report 20031739 (Version 1)
Quarter: 2021Q4

REPORT INFORMATION
  Report Type: Report from Study
  Country: US (occurrence: US)
  Receive Date: 20211103
  Receipt Date: 20211103
  Transmission Date: 20220303
  Serious: Yes (Hospitalization, Other)
  Sender: FDA-Public Use
  Company Number: US-ABBVIE-21K-163-4141535-00

PATIENT
  Sex: Female

DRUGS (1)
  1. CREON [Suspect]
     Active Substance: PANCRELIPASE AMYLASE\PANCRELIPASE LIPASE\PANCRELIPASE PROTEASE
     Indication: Product used for unknown indication
     Route: 048

REACTIONS (11)
  - Spinal fusion surgery [Unknown]
  - Shoulder operation [Unknown]
  - Cholecystectomy [Unknown]
  - Hospitalisation [Unknown]
  - Abdominal pain upper [Unknown]
  - Feeding disorder [Unknown]
  - Weight decreased [Unknown]
  - Anxiety [Unknown]
  - Colonoscopy [Unknown]
  - Nausea [Unknown]
  - Vomiting [Unknown]

NARRATIVE: CASE EVENT DATE: 20160101
